FAERS Safety Report 9374620 (Version 1)
Quarter: 2013Q2

REPORT INFORMATION
  Report Type: Spontaneous
  Country: US (occurrence: US)
  Receive Date: 20130628
  Receipt Date: 20130628
  Transmission Date: 20140414
  Serious: Yes (Other)
  Sender: FDA-Public Use
  Company Number: US-PFIZER INC-2013192355

PATIENT
  Age: 50 Year
  Sex: Female
  Weight: 58.96 kg

DRUGS (10)
  1. LYRICA [Suspect]
     Indication: MUSCLE TIGHTNESS
     Dosage: 300MG DAILY
     Dates: start: 2010
  2. LYRICA [Suspect]
     Indication: NERVOUS SYSTEM DISORDER
  3. LYRICA [Suspect]
     Indication: MUSCLE DISORDER
  4. ALPRAZOLAM [Suspect]
     Indication: ANXIETY
     Dosage: 4 MG, UNK
  5. ALPRAZOLAM [Suspect]
     Indication: SLEEP DISORDER
  6. QUETIAPINE [Suspect]
     Dosage: UNK
  7. OMEPRAZOLE [Concomitant]
     Dosage: UNK
  8. TRAZODONE [Concomitant]
     Indication: ANXIETY
     Dosage: 1 MG, UNK
  9. TRAZODONE [Concomitant]
     Indication: SLEEP DISORDER
  10. CITALOPRAM [Concomitant]
     Dosage: UNK

REACTIONS (4)
  - Breast cancer female [Unknown]
  - Neuralgia [Unknown]
  - Depression [Unknown]
  - Drug ineffective [Unknown]
